FAERS Safety Report 18969415 (Version 2)
Quarter: 2021Q1

REPORT INFORMATION
  Report Type: Report from Study
  Country: IT (occurrence: IT)
  Receive Date: 20210304
  Receipt Date: 20210316
  Transmission Date: 20210420
  Serious: Yes (Death, Hospitalization)
  Sender: FDA-Public Use
  Company Number: IT-INCYTE CORPORATION-2021IN001704

PATIENT

DRUGS (13)
  1. LEDERFOLIN [Concomitant]
     Active Substance: LEUCOVORIN CALCIUM
     Indication: ANAEMIA
     Dosage: 1 DF, QW (1 VIAL)
     Route: 065
     Dates: start: 20201215
  2. CARDIOASPIRINA [Concomitant]
     Active Substance: ASPIRIN
     Indication: THROMBOSIS PROPHYLAXIS
     Dosage: 100 MG, QD
     Route: 065
     Dates: start: 20190313
  3. IVOR [BEMIPARIN SODIUM] [Concomitant]
     Indication: THROMBOSIS PROPHYLAXIS
     Dosage: 5000 IU
     Route: 065
     Dates: start: 20201215
  4. ZOCOR [Concomitant]
     Active Substance: SIMVASTATIN
     Indication: PROPHYLAXIS
     Dosage: 20 MG, QD
     Route: 065
     Dates: start: 20190313
  5. KAYEXALATE [Concomitant]
     Active Substance: SODIUM POLYSTYRENE SULFONATE
     Indication: ACUTE KIDNEY INJURY
     Dosage: 15 MG, QD
     Route: 065
     Dates: start: 20201119
  6. CARNITENE [LEVOCARNITINE] [Concomitant]
     Indication: ACUTE KIDNEY INJURY
     Dosage: 1 DF, TIW
     Route: 065
     Dates: start: 20201215
  7. JAKAVI [Suspect]
     Active Substance: RUXOLITINIB
     Indication: MYELOFIBROSIS
     Dosage: 15 MG, TIW
     Route: 048
     Dates: start: 20201222
  8. ONCO CARBIDE [Concomitant]
     Active Substance: HYDROXYUREA
     Indication: MYELOFIBROSIS
     Dosage: 500 MG 4 TIMES EVERY WEEK
     Route: 065
     Dates: start: 20200523
  9. PANTORC [Concomitant]
     Active Substance: PANTOPRAZOLE SODIUM
     Indication: GASTRITIS PROPHYLAXIS
     Dosage: 40 MG, QD
     Route: 065
     Dates: start: 20200702
  10. DOBETIN [CYANOCOBALAMIN] [Concomitant]
     Active Substance: CYANOCOBALAMIN
     Indication: ANAEMIA
     Dosage: 1 DF, QW (1 VIAL)
     Route: 065
     Dates: start: 20201215
  11. RETACRIT [EPOETIN ZETA] [Concomitant]
     Active Substance: ERYTHROPOIETIN
     Indication: ANAEMIA
     Dosage: 10000 IU, TIW
     Route: 065
     Dates: start: 20201215
  12. RENVELA [Concomitant]
     Active Substance: SEVELAMER CARBONATE
     Indication: ACUTE KIDNEY INJURY
     Dosage: 800 MG, QD
     Route: 065
     Dates: start: 20201119
  13. OLEVIA [Concomitant]
     Active Substance: OMEGA-3-ACID ETHYL ESTERS
     Indication: HYPERTRIGLYCERIDAEMIA
     Dosage: 1000 MG, QD
     Route: 065
     Dates: start: 20210127

REACTIONS (2)
  - Asymptomatic COVID-19 [Unknown]
  - Cardiac failure [Fatal]

NARRATIVE: CASE EVENT DATE: 20210206
